FAERS Safety Report 12391201 (Version 1)
Quarter: 2016Q2

REPORT INFORMATION
  Report Type: Spontaneous
  Country: US (occurrence: US)
  Receive Date: 20160520
  Receipt Date: 20160520
  Transmission Date: 20160815
  Serious: Yes (Other)
  Sender: FDA-Public Use
  Company Number: US-MDT-ADR-2016-00041

PATIENT
  Age: 26 Year
  Sex: Male

DRUGS (6)
  1. LIORESAL [Suspect]
     Active Substance: BACLOFEN
     Dosage: 100.99MCG/DAY
     Route: 037
     Dates: start: 20151204, end: 20151215
  2. GABAPENTIN. [Suspect]
     Active Substance: GABAPENTIN
  3. PHENOBARBITAL. [Suspect]
     Active Substance: PHENOBARBITAL
  4. GLYCOPYROLATE [Suspect]
     Active Substance: GLYCOPYRROLATE
  5. LIORESAL [Suspect]
     Active Substance: BACLOFEN
     Dosage: 115.99MCG/DAY
     Route: 037
     Dates: start: 20151215, end: 20160121
  6. BACLOFEN. [Suspect]
     Active Substance: BACLOFEN
     Dosage: 20MG TWICE DAILY
     Route: 048

REACTIONS (5)
  - Pain [Unknown]
  - Muscle tightness [Unknown]
  - Discomfort [Unknown]
  - Muscle spasticity [Unknown]
  - Medical device site cellulitis [Recovered/Resolved]
